FAERS Safety Report 23251303 (Version 1)
Quarter: 2023Q4

REPORT INFORMATION
  Report Type: Spontaneous
  Country: US (occurrence: US)
  Receive Date: 20231201
  Receipt Date: 20231201
  Transmission Date: 20240109
  Serious: Yes (Other)
  Sender: FDA-Public Use
  Company Number: US-JNJFOC-20231158548

PATIENT
  Sex: Female
  Weight: 69.462 kg

DRUGS (4)
  1. TECVAYLI [Suspect]
     Active Substance: TECLISTAMAB-CQYV
     Indication: Plasma cell myeloma
     Dosage: INITIAL RAMP UP DOSING WITH TECVAYLI 30MG/3ML
     Route: 065
  2. TECVAYLI [Suspect]
     Active Substance: TECLISTAMAB-CQYV
     Dosage: TECVAYLI STRENGTH: 153MG/1.7ML VIAL?.
     Route: 065
  3. TECVAYLI [Suspect]
     Active Substance: TECLISTAMAB-CQYV
     Dosage: HAS NOT BEEN TREATED SINCE 11/6?.
     Route: 065
  4. AZITHROMYCIN [Concomitant]
     Active Substance: AZITHROMYCIN
     Indication: Product used for unknown indication
     Route: 065

REACTIONS (3)
  - Coombs negative haemolytic anaemia [Unknown]
  - Hypoxia [Unknown]
  - Cough [Unknown]
